FAERS Safety Report 7953281-1 (Version None)
Quarter: 2011Q4

REPORT INFORMATION
  Report Type: 
  Country: None (occurrence: None)
  Receive Date: 20111201
  Receipt Date: 20111120
  Transmission Date: 20120403
  Serious: Yes (Hospitalization)
  Sender: FDA-Public Use
  Company Number: US-MYLANLABS-2009S1008314

PATIENT
  Age: 19 Month
  Sex: Female

DRUGS (1)
  1. FENTANYL-100 [Suspect]
     Route: 062

REACTIONS (3)
  - OVERDOSE [None]
  - LEUKOENCEPHALOPATHY [None]
  - ACCIDENTAL EXPOSURE [None]
